FAERS Safety Report 23261727 (Version 1)
Quarter: 2023Q4

REPORT INFORMATION
  Report Type: Report from Study
  Country: FR (occurrence: FR)
  Receive Date: 20231205
  Receipt Date: 20231205
  Transmission Date: 20240109
  Serious: Yes (Death, Hospitalization, Other)
  Sender: FDA-Public Use
  Company Number: FR-002147023-NVSC2020FR280609

PATIENT
  Age: 69 Year
  Sex: Male
  Weight: 80.5 kg

DRUGS (13)
  1. TACROLIMUS [Suspect]
     Active Substance: TACROLIMUS
     Indication: Renal transplant
     Dosage: 2 MG
     Route: 048
     Dates: start: 20200926
  2. TACROLIMUS [Suspect]
     Active Substance: TACROLIMUS
     Dosage: 1 (MG/J)
     Route: 065
     Dates: start: 20201016
  3. TACROLIMUS [Suspect]
     Active Substance: TACROLIMUS
     Dosage: 1 (MG/J)
     Route: 065
     Dates: start: 20201017
  4. TACROLIMUS [Suspect]
     Active Substance: TACROLIMUS
     Dosage: 10 (MG/J)
     Route: 065
     Dates: start: 20200930
  5. TACROLIMUS [Suspect]
     Active Substance: TACROLIMUS
     Dosage: 2 (2 MG/J)
     Route: 065
     Dates: start: 20201013
  6. TACROLIMUS [Suspect]
     Active Substance: TACROLIMUS
     Dosage: 2 (MG/J)
     Route: 065
     Dates: start: 20201015
  7. TACROLIMUS [Suspect]
     Active Substance: TACROLIMUS
     Dosage: 2 (MG/J)
     Route: 065
     Dates: start: 20201018
  8. TACROLIMUS [Suspect]
     Active Substance: TACROLIMUS
     Dosage: 4 (4MG/J)
     Route: 065
     Dates: start: 20201008
  9. TACROLIMUS [Suspect]
     Active Substance: TACROLIMUS
     Dosage: 8 (8 MG/J)
     Route: 065
     Dates: start: 20200928
  10. TACROLIMUS [Suspect]
     Active Substance: TACROLIMUS
     Dosage: 8 (MG/J)
     Route: 065
     Dates: start: 20201002
  11. TACROLIMUS [Suspect]
     Active Substance: TACROLIMUS
     Dosage: UNK
     Route: 065
     Dates: start: 20201014
  12. Bactin [Concomitant]
     Indication: Product used for unknown indication
     Dosage: UNK
     Route: 065
  13. VALGANCICLOVIR [Concomitant]
     Active Substance: VALGANCICLOVIR
     Indication: Product used for unknown indication
     Dosage: UNK
     Route: 065

REACTIONS (17)
  - Microalbuminuria [Fatal]
  - Renal failure [Fatal]
  - Neurological examination abnormal [Fatal]
  - Oxygen saturation decreased [Fatal]
  - Hypoxia [Fatal]
  - COVID-19 pneumonia [Fatal]
  - Eye pruritus [Unknown]
  - Chest pain [Unknown]
  - Pyrexia [Unknown]
  - Dyspnoea [Unknown]
  - Myalgia [Unknown]
  - Delayed graft function [Recovered/Resolved]
  - Respiratory failure [Unknown]
  - Cardio-respiratory arrest [Recovered/Resolved]
  - Pleural effusion [Unknown]
  - Immunosuppressant drug level increased [Unknown]
  - Drug interaction [Unknown]

NARRATIVE: CASE EVENT DATE: 20200926
